FAERS Safety Report 24543783 (Version 2)
Quarter: 2024Q4

REPORT INFORMATION
  Report Type: Spontaneous
  Country: US (occurrence: US)
  Receive Date: 20241024
  Receipt Date: 20241119
  Transmission Date: 20250114
  Serious: Yes (Hospitalization, Other)
  Sender: UCB
  Company Number: US-UCBSA-2024054401

PATIENT
  Sex: Female

DRUGS (1)
  1. BIMZELX [Suspect]
     Active Substance: BIMEKIZUMAB-BKZX
     Indication: Psoriatic arthropathy
     Dosage: UNK
     Dates: start: 2020, end: 202406

REACTIONS (5)
  - Immune thrombocytopenia [Not Recovered/Not Resolved]
  - Platelet count decreased [Unknown]
  - Psoriatic arthropathy [Unknown]
  - Therapy cessation [Unknown]
  - Drug ineffective [Unknown]
